FAERS Safety Report 21560758 (Version 1)
Quarter: 2022Q4

REPORT INFORMATION
  Report Type: Spontaneous
  Country: DE (occurrence: DE)
  Receive Date: 20221107
  Receipt Date: 20221107
  Transmission Date: 20230113
  Serious: Yes (Other)
  Sender: FDA-Public Use
  Company Number: DE-GILEAD-2022-0604031

PATIENT
  Sex: Male

DRUGS (2)
  1. TECARTUS [Suspect]
     Active Substance: BREXUCABTAGENE AUTOLEUCEL
     Indication: Mantle cell lymphoma
     Dosage: UNK
     Route: 042
  2. LENALIDOMIDE [Concomitant]
     Active Substance: LENALIDOMIDE

REACTIONS (2)
  - Lymphoma [Recovered/Resolved]
  - Nervous system disorder [Recovered/Resolved]
